FAERS Safety Report 17151846 (Version 2)
Quarter: 2019Q4

REPORT INFORMATION
  Report Type: Spontaneous
  Country: SE (occurrence: SE)
  Receive Date: 20191213
  Receipt Date: 20191220
  Transmission Date: 20200122
  Serious: Yes (Hospitalization)
  Sender: FDA-Public Use
  Company Number: SE-PFIZER INC-2019534209

PATIENT
  Age: 23 Year
  Sex: Female

DRUGS (5)
  1. ZOPICLONE [Suspect]
     Active Substance: ZOPICLONE
     Dosage: 75 MG, UNK (10 TABLETS, 7.5 MG)
     Route: 048
     Dates: start: 20181123, end: 20181123
  2. STESOLID [Suspect]
     Active Substance: DIAZEPAM
     Dosage: UNK (5 MG, 25 MG)
     Route: 048
     Dates: start: 20181123, end: 20181123
  3. PROPAVAN [Suspect]
     Active Substance: PROPIOMAZINE
     Dosage: 2000 MG, UNK (80 TABLETS, 25 MG)
     Route: 048
     Dates: start: 20181123, end: 20181123
  4. LYRICA [Suspect]
     Active Substance: PREGABALIN
     Dosage: 2100 MG, UNK (14 PIECES 150 MG)
     Dates: start: 20181123, end: 20181123
  5. RISPERDAL [Suspect]
     Active Substance: RISPERIDONE
     Dosage: 5 MG, UNK (10 PIECES 0.5 MG)
     Route: 048
     Dates: start: 20181123, end: 20181123

REACTIONS (3)
  - Intentional self-injury [Unknown]
  - Intentional overdose [Unknown]
  - Somnolence [Unknown]

NARRATIVE: CASE EVENT DATE: 20181123
